FAERS Safety Report 5793209-6 (Version None)
Quarter: 2008Q2

REPORT INFORMATION
  Report Type: 
  Country: None (occurrence: None)
  Receive Date: 20080626
  Receipt Date: 20080626
  Transmission Date: 20081010
  Serious: Yes (Death)
  Sender: FDA-Public Use
  Company Number: None

PATIENT
  Age: 77 Year
  Sex: Female
  Weight: 49.8 kg

DRUGS (1)
  1. AMEVIVE [Suspect]
     Indication: ANGIOIMMUNOBLASTIC T-CELL LYMPHOMA
     Dosage: 10MG WEEKLY X 8 IV
     Route: 042
     Dates: start: 20080107, end: 20080121

REACTIONS (3)
  - MALAISE [None]
  - ROAD TRAFFIC ACCIDENT [None]
  - UNRESPONSIVE TO STIMULI [None]
